FAERS Safety Report 22976184 (Version 3)
Quarter: 2023Q4

REPORT INFORMATION
  Report Type: Spontaneous
  Country: US (occurrence: US)
  Receive Date: 20230925
  Receipt Date: 20231026
  Transmission Date: 20240109
  Serious: No
  Sender: FDA-Public Use
  Company Number: US-JNJFOC-20230941488

PATIENT
  Age: 8 Decade
  Sex: Male

DRUGS (1)
  1. XARELTO [Suspect]
     Active Substance: RIVAROXABAN
     Indication: Thrombosis prophylaxis
     Dosage: 1 DAY
     Route: 048
     Dates: start: 2019

REACTIONS (3)
  - Product packaging quantity issue [Unknown]
  - Adverse event [Unknown]
  - Irritability [Unknown]

NARRATIVE: CASE EVENT DATE: 20230101
